FAERS Safety Report 16176490 (Version 4)
Quarter: 2019Q3

REPORT INFORMATION
  Report Type: Report from Study
  Country: US (occurrence: US)
  Receive Date: 20190409
  Receipt Date: 20190819
  Transmission Date: 20191004
  Serious: Yes (Hospitalization, Disabling, Other)
  Sender: FDA-Public Use
  Company Number: US-TAKEDA-2018TUS029333

PATIENT
  Age: 24 Year
  Sex: Male

DRUGS (1)
  1. PONATINIB [Suspect]
     Active Substance: PONATINIB
     Indication: CHRONIC LYMPHOCYTIC LEUKAEMIA
     Dosage: 45 MILLIGRAM, QD
     Route: 048
     Dates: start: 201802

REACTIONS (18)
  - Pain [Not Recovered/Not Resolved]
  - Hypoaesthesia [Unknown]
  - Anxiety [Recovering/Resolving]
  - Nasopharyngitis [Recovered/Resolved]
  - Metastases to meninges [Not Recovered/Not Resolved]
  - Facial paralysis [Recovered/Resolved]
  - Blindness [Not Recovered/Not Resolved]
  - Abdominal discomfort [Recovered/Resolved]
  - Muscular weakness [Not Recovered/Not Resolved]
  - Dysarthria [Recovered/Resolved]
  - Mean cell haemoglobin concentration abnormal [Unknown]
  - Hypoacusis [Unknown]
  - Off label use [Unknown]
  - Rash [Recovered/Resolved]
  - Blood alkaline phosphatase abnormal [Recovered/Resolved]
  - Fall [Unknown]
  - Nasal mucosal disorder [Unknown]
  - Rhinorrhoea [Recovered/Resolved]

NARRATIVE: CASE EVENT DATE: 2014
